FAERS Safety Report 16275404 (Version 2)
Quarter: 2019Q2

REPORT INFORMATION
  Report Type: Spontaneous
  Country: AU (occurrence: AU)
  Receive Date: 20190504
  Receipt Date: 20190611
  Transmission Date: 20190711
  Serious: Yes (Hospitalization, Other)
  Sender: FDA-Public Use
  Company Number: PHHY2019AU100516

PATIENT
  Sex: Female

DRUGS (4)
  1. TEGRETOL [Suspect]
     Active Substance: CARBAMAZEPINE
     Dosage: 500 MG, QD (200 AM 300PM)
     Route: 048
     Dates: start: 20171110
  2. TEGRETOL [Suspect]
     Active Substance: CARBAMAZEPINE
     Dosage: EITHER 250 MG OR 300MG
     Route: 048
  3. TEGRETOL [Suspect]
     Active Substance: CARBAMAZEPINE
     Indication: TRIGEMINAL NEURALGIA
     Dosage: VARIOUS DOSES
     Route: 048
     Dates: start: 2005
  4. TEGRETOL [Suspect]
     Active Substance: CARBAMAZEPINE
     Dosage: 500 MG, QD
     Route: 048
     Dates: start: 20110101

REACTIONS (7)
  - Leukopenia [Unknown]
  - Trigeminal neuralgia [Unknown]
  - Autoimmune disorder [Unknown]
  - Bronchitis [Unknown]
  - Hypersplenism [Unknown]
  - Neutropenia [Recovered/Resolved]
  - Viral infection [Unknown]

NARRATIVE: CASE EVENT DATE: 2017
